FAERS Safety Report 9831754 (Version 1)
Quarter: 2014Q1

REPORT INFORMATION
  Report Type: Spontaneous
  Country: US (occurrence: US)
  Receive Date: 20140121
  Receipt Date: 20140121
  Transmission Date: 20141002
  Serious: No
  Sender: FDA-Public Use
  Company Number: US-PFIZER INC-2014014350

PATIENT
  Age: 69 Year
  Sex: Female
  Weight: 61.22 kg

DRUGS (5)
  1. SUMATRIPTAN SUCCINATE [Suspect]
     Indication: MIGRAINE
     Dosage: UNK
  2. DIAZEPAM [Concomitant]
     Indication: ANXIETY
     Dosage: 5 MG, UNK
  3. PREMARIN [Concomitant]
     Indication: OESTROGEN DEFICIENCY
     Dosage: 1.25 MG, 1X/DAY
     Route: 048
  4. WELLBUTRIN XL [Concomitant]
     Dosage: 150 MG, 1X/DAY
     Route: 048
  5. QUINAPRIL [Concomitant]
     Dosage: UNK

REACTIONS (1)
  - Drug ineffective [Unknown]
